FAERS Safety Report 15804748 (Version 4)
Quarter: 2019Q2

REPORT INFORMATION
  Report Type: Spontaneous
  Country: BR (occurrence: BR)
  Receive Date: 20190109
  Receipt Date: 20190606
  Transmission Date: 20190711
  Serious: Yes (Other)
  Sender: FDA-Public Use
  Company Number: BR-MYLANLABS-2018M1087042

PATIENT
  Sex: Male
  Weight: 78 kg

DRUGS (6)
  1. LEPONEX [Suspect]
     Active Substance: CLOZAPINE
     Indication: SCHIZOPHRENIA
     Dosage: 200 MG, AM
     Route: 048
     Dates: start: 2009
  2. LIORESAL [Suspect]
     Active Substance: BACLOFEN
     Indication: TARDIVE DYSKINESIA
     Dosage: 2 DOSAGE FORM, AM
     Route: 048
     Dates: start: 2012
  3. LEPONEX [Suspect]
     Active Substance: CLOZAPINE
     Dosage: 700 MG, PM
     Route: 048
     Dates: start: 2009
  4. LIORESAL [Suspect]
     Active Substance: BACLOFEN
     Dosage: 2 DOSAGE FORM, PM
     Route: 048
     Dates: start: 2012
  5. NEXIUM [Concomitant]
     Active Substance: ESOMEPRAZOLE MAGNESIUM
     Indication: GASTRIC DISORDER
  6. DEPAKOTE [Concomitant]
     Active Substance: DIVALPROEX SODIUM

REACTIONS (10)
  - Seizure [Recovering/Resolving]
  - Product availability issue [Unknown]
  - Constipation [Unknown]
  - Suicide attempt [Recovered/Resolved]
  - Circadian rhythm sleep disorder [Unknown]
  - Malaise [Unknown]
  - Drug ineffective [Recovered/Resolved]
  - Nausea [Recovering/Resolving]
  - Dyskinesia [Recovered/Resolved]
  - Product physical issue [Unknown]

NARRATIVE: CASE EVENT DATE: 2009
